FAERS Safety Report 6716649-7 (Version None)
Quarter: 2010Q2

REPORT INFORMATION
  Report Type: 
  Country: None (occurrence: None)
  Receive Date: 20100509
  Receipt Date: 20100504
  Transmission Date: 20101027
  Serious: Yes (Hospitalization)
  Sender: FDA-Public Use
  Company Number: US-BRISTOL-MYERS SQUIBB COMPANY-15064942

PATIENT
  Age: 66 Year
  Sex: Female

DRUGS (6)
  1. XL139 [Suspect]
     Indication: GASTRIC CANCER
     Dosage: NO OF COURSE=2
     Route: 048
     Dates: start: 20100304
  2. XL139 [Suspect]
     Indication: METASTASES TO PERITONEUM
     Dosage: NO OF COURSE=2
     Route: 048
     Dates: start: 20100304
  3. CISPLATIN [Suspect]
     Indication: GASTRIC CANCER
     Dosage: NO OF COURSE=1
     Route: 042
     Dates: start: 20100318
  4. CISPLATIN [Suspect]
     Indication: METASTASES TO PERITONEUM
     Dosage: NO OF COURSE=1
     Route: 042
     Dates: start: 20100318
  5. XELODA [Suspect]
     Indication: GASTRIC CANCER
     Dosage: NO OF COURSE=1
     Route: 048
     Dates: start: 20100318
  6. XELODA [Suspect]
     Indication: METASTASES TO PERITONEUM
     Dosage: NO OF COURSE=1
     Route: 048
     Dates: start: 20100318

REACTIONS (3)
  - ABDOMINAL PAIN [None]
  - NAUSEA [None]
  - VOMITING [None]
